FAERS Safety Report 15893939 (Version 2)
Quarter: 2019Q1

REPORT INFORMATION
  Report Type: Spontaneous
  Country: JP (occurrence: JP)
  Receive Date: 20190131
  Receipt Date: 20190302
  Transmission Date: 20190417
  Serious: Yes (Hospitalization)
  Sender: FDA-Public Use
  Company Number: JP-AMGEN-JPNSP2018185980

PATIENT
  Age: 79 Year
  Sex: Male
  Weight: 47 kg

DRUGS (7)
  1. PREDONINE [Concomitant]
     Active Substance: PREDNISOLONE
     Dosage: 5 MG, BID
     Route: 048
     Dates: start: 20160901
  2. ZOLADEX LA [Concomitant]
     Active Substance: GOSERELIN ACETATE
     Dosage: 10.8 MG, QD
     Route: 058
     Dates: start: 20120925, end: 20131119
  3. LEUPLIN [Concomitant]
     Active Substance: LEUPROLIDE ACETATE
     Dosage: 22.5 MG, QD
     Route: 058
     Dates: start: 20160114, end: 20171124
  4. RANMARK [Suspect]
     Active Substance: DENOSUMAB
     Indication: METASTASES TO BONE
     Dosage: 120 MG, Q4WK
     Route: 058
     Dates: start: 20160901, end: 20170608
  5. DENOTAS [Concomitant]
     Active Substance: CALCIUM CARBONATE\CHOLECALCIFEROL\MAGNESIUM CARBONATE
     Dosage: UNK UNK, QD
     Route: 048
     Dates: start: 20160901, end: 20170608
  6. FILGRASTIM BS [Concomitant]
     Active Substance: FILGRASTIM
     Dosage: 150 MUG, QD
     Route: 058
     Dates: start: 20171201, end: 20180211
  7. GONAX [Concomitant]
     Active Substance: DEGARELIX
     Dosage: 80 MG, QD
     Route: 058
     Dates: start: 20140213, end: 20151217

REACTIONS (1)
  - Osteonecrosis of jaw [Recovering/Resolving]

NARRATIVE: CASE EVENT DATE: 20180412
